FAERS Safety Report 9517164 (Version 1)
Quarter: 2013Q3

REPORT INFORMATION
  Report Type: Spontaneous
  Country: US (occurrence: US)
  Receive Date: 20130911
  Receipt Date: 20130911
  Transmission Date: 20140515
  Serious: No
  Sender: FDA-Public Use
  Company Number: US-PFIZER INC-2013259563

PATIENT
  Age: 6 Month
  Sex: Female
  Weight: 7.26 kg

DRUGS (1)
  1. MOTRIN IB [Suspect]
     Indication: PYREXIA
     Dosage: 1.25 ML, 3 TIMES A DAY
     Route: 048
     Dates: start: 20130728

REACTIONS (1)
  - Rash [Not Recovered/Not Resolved]
